FAERS Safety Report 14586737 (Version 1)
Quarter: 2018Q1

REPORT INFORMATION
  Report Type: Report from Study
  Country: BR (occurrence: BR)
  Receive Date: 20180301
  Receipt Date: 20180301
  Transmission Date: 20180509
  Serious: Yes (Other)
  Sender: FDA-Public Use
  Company Number: BR-BAYER-2016-159141

PATIENT
  Age: 49 Year
  Sex: Female

DRUGS (4)
  1. BETAFERON [Suspect]
     Active Substance: INTERFERON BETA-1B
     Indication: MULTIPLE SCLEROSIS
     Dosage: 1 ML, QOD
     Route: 058
     Dates: end: 201711
  2. CORTICOSTEROID NOS [Concomitant]
     Active Substance: CORTICOSTEROID NOS
     Indication: MULTIPLE SCLEROSIS
  3. BETAFERON [Suspect]
     Active Substance: INTERFERON BETA-1B
     Indication: MULTIPLE SCLEROSIS
     Dosage: 1 ML, QOD
     Route: 058
     Dates: start: 20130301, end: 201702
  4. TEGRETOL [Suspect]
     Active Substance: CARBAMAZEPINE
     Indication: SEIZURE
     Dosage: 1 DF, BID
     Route: 048
     Dates: start: 200501, end: 201702

REACTIONS (9)
  - Injection site mass [Recovered/Resolved]
  - Poor peripheral circulation [None]
  - Breast cancer female [Recovered/Resolved]
  - Dermatitis allergic [Recovering/Resolving]
  - Headache [Not Recovered/Not Resolved]
  - Injection site rash [Recovered/Resolved]
  - Menopause [None]
  - Pruritus [Recovering/Resolving]
  - Injection site pain [Recovered/Resolved]

NARRATIVE: CASE EVENT DATE: 201405
